FAERS Safety Report 8255038-3 (Version None)
Quarter: 2012Q2

REPORT INFORMATION
  Report Type: 
  Country: None (occurrence: None)
  Receive Date: 20120403
  Receipt Date: 20120329
  Transmission Date: 20120825
  Serious: Yes (Other)
  Sender: FDA-Public Use
  Company Number: SG-ABBOTT-12P-141-0920444-00

PATIENT
  Age: 69 Year
  Sex: Male

DRUGS (1)
  1. HYTRIN [Suspect]
     Indication: PRODUCT USED FOR UNKNOWN INDICATION
     Route: 065

REACTIONS (1)
  - DERMATITIS ALLERGIC [None]
